FAERS Safety Report 8142019-3 (Version None)
Quarter: 2012Q1

REPORT INFORMATION
  Report Type: 
  Country: None (occurrence: None)
  Receive Date: 20120216
  Receipt Date: 20120208
  Transmission Date: 20120608
  Serious: Yes (Other)
  Sender: FDA-Public Use
  Company Number: US-ALLERGAN-1201899US

PATIENT
  Age: 53 Year
  Sex: Male

DRUGS (2)
  1. BOTULINUM TOXIN TYPE A [Suspect]
     Indication: MUSCLE SPASMS
     Dosage: UNK
     Route: 030
     Dates: start: 20111201, end: 20111201
  2. SYMBICORT [Suspect]
     Indication: DYSPNOEA

REACTIONS (3)
  - MUSCLE RIGIDITY [None]
  - DYSPNOEA [None]
  - MUSCULOSKELETAL STIFFNESS [None]
